FAERS Safety Report 22319067 (Version 1)
Quarter: 2023Q2

REPORT INFORMATION
  Report Type: Spontaneous
  Country: PL (occurrence: PL)
  Receive Date: 20230515
  Receipt Date: 20230515
  Transmission Date: 20230722
  Serious: Yes (Death, Life-Threatening, Other)
  Sender: FDA-Public Use
  Company Number: PL-KRKA-PL2019K20096LIT

PATIENT
  Age: 12 Month
  Sex: Male

DRUGS (9)
  1. DICLOFENAC [Suspect]
     Active Substance: DICLOFENAC
     Indication: Product used for unknown indication
     Dosage: UNK
     Route: 065
  2. CYCLOPHOSPHAMIDE [Suspect]
     Active Substance: CYCLOPHOSPHAMIDE
     Indication: Desmoid tumour
     Dosage: UNK
  3. TAMOXIFEN [Suspect]
     Active Substance: TAMOXIFEN
     Dosage: UNK
  4. DACTINOMYCIN [Suspect]
     Active Substance: DACTINOMYCIN
     Indication: Desmoid tumour
     Dosage: UNK
  5. IMATINIB MESYLATE [Suspect]
     Active Substance: IMATINIB MESYLATE
     Indication: Desmoid tumour
     Dosage: UNK
  6. VINBLASTINE [Suspect]
     Active Substance: VINBLASTINE
     Indication: Desmoid tumour
     Dosage: UNK
  7. VINCRISTINE [Suspect]
     Active Substance: VINCRISTINE
     Indication: Desmoid tumour
     Dosage: UNK
  8. IFOSFAMIDE [Suspect]
     Active Substance: IFOSFAMIDE
     Indication: Desmoid tumour
     Dosage: UNK
  9. METHOTREXATE [Suspect]
     Active Substance: METHOTREXATE
     Indication: Desmoid tumour
     Dosage: UNK

REACTIONS (2)
  - Drug ineffective [Fatal]
  - Disease progression [Fatal]
